FAERS Safety Report 8226384 (Version 2)
Quarter: 2013Q4

REPORT INFORMATION
  Report Type: Spontaneous
  Country: US (occurrence: US)
  Receive Date: 20111103
  Receipt Date: 20131211
  Transmission Date: 20140711
  Serious: Yes (Hospitalization, Other)
  Sender: FDA-Public Use
  Company Number: US-ASTRAZENECA-2011SE64920

PATIENT
  Age: 55 Year
  Sex: Female
  Weight: 81.6 kg

DRUGS (13)
  1. NEXIUM [Suspect]
     Indication: GASTROOESOPHAGEAL REFLUX DISEASE
     Dosage: TWO DOSES IN A DAY / TWO PILLS DAILY
     Route: 048
  2. NEXIUM [Suspect]
     Indication: GASTROOESOPHAGEAL REFLUX DISEASE
     Route: 048
     Dates: start: 2003
  3. CRESTOR [Suspect]
     Indication: BLOOD CHOLESTEROL ABNORMAL
     Route: 048
  4. ASPIRIN [Concomitant]
     Dosage: 81 DOSE DAILY
  5. TAMPERINE [Concomitant]
  6. DIAZEPAM [Concomitant]
  7. FLEXRIL [Concomitant]
  8. CELEBREX [Concomitant]
  9. MYSOLINE [Concomitant]
  10. MORPHINE SULFATE IMR [Concomitant]
  11. EFEXER [Concomitant]
  12. CINGULAR [Concomitant]
  13. ALBUTEROL [Concomitant]
     Dosage: PRN

REACTIONS (8)
  - Retinal vein occlusion [Unknown]
  - Cardiovascular disorder [Unknown]
  - Osteoporosis [Unknown]
  - Hearing impaired [Unknown]
  - Fibromyalgia [Unknown]
  - Oedema peripheral [Unknown]
  - Diplopia [Unknown]
  - Off label use [Unknown]
